FAERS Safety Report 26007797 (Version 1)
Quarter: 2025Q4

REPORT INFORMATION
  Report Type: Spontaneous
  Country: EU (occurrence: EU)
  Receive Date: 20251106
  Receipt Date: 20251106
  Transmission Date: 20260118
  Serious: Yes (Hospitalization)
  Sender: JOHNSON AND JOHNSON
  Company Number: EU-JNJFOC-20251035892

PATIENT
  Sex: Male

DRUGS (2)
  1. AMIVANTAMAB\HYALURONIDASE (HUMAN RECOMBINANT) [Suspect]
     Active Substance: AMIVANTAMAB\HYALURONIDASE (HUMAN RECOMBINANT)
     Indication: Non-small cell lung cancer
     Dosage: 3 INJECTIONS
     Route: 058
  2. LAZERTINIB [Suspect]
     Active Substance: LAZERTINIB
     Indication: Non-small cell lung cancer
     Route: 048

REACTIONS (4)
  - Transaminases increased [Unknown]
  - Thrombosis [Unknown]
  - Pulmonary embolism [Unknown]
  - Oedema peripheral [Unknown]
